FAERS Safety Report 8623530-5 (Version None)
Quarter: 2012Q3

REPORT INFORMATION
  Report Type: 
  Country: None (occurrence: None)
  Receive Date: 20120827
  Receipt Date: 20120823
  Transmission Date: 20120928
  Serious: Yes (Other)
  Sender: FDA-Public Use
  Company Number: US-PFIZER INC-2012208628

PATIENT
  Age: 65 Year
  Sex: Male
  Weight: 81.633 kg

DRUGS (3)
  1. CHANTIX [Suspect]
     Indication: SMOKING CESSATION THERAPY
     Dosage: 0.5 MG, 1X/DAY
     Dates: start: 20120101, end: 20120101
  2. EPZICOM [Suspect]
     Indication: HIV INFECTION
     Dosage: 300 MG, DAILY
     Dates: end: 20120101
  3. CHANTIX [Suspect]
     Dosage: UNK
     Dates: start: 20120101

REACTIONS (2)
  - RENAL FUNCTION TEST ABNORMAL [None]
  - DRUG INTOLERANCE [None]
